FAERS Safety Report 14195605 (Version 2)
Quarter: 2017Q4

REPORT INFORMATION
  Report Type: Spontaneous
  Country: US (occurrence: US)
  Receive Date: 20171116
  Receipt Date: 20171205
  Transmission Date: 20180321
  Serious: Yes (Other)
  Sender: FDA-Public Use
  Company Number: US-ASTRAZENECA-2017SF14350

PATIENT
  Age: 55 Year
  Sex: Female
  Weight: 82.1 kg

DRUGS (14)
  1. BRILINTA [Suspect]
     Active Substance: TICAGRELOR
     Indication: STENT PLACEMENT
     Route: 048
     Dates: start: 20171121, end: 20171122
  2. BISOPROLOL HCTZ [Concomitant]
     Indication: BLOOD PRESSURE ABNORMAL
     Dosage: 10-6.25 MG
     Route: 048
     Dates: start: 20170903
  3. BISOPROLOL HCTZ [Concomitant]
     Indication: HYPERTENSION
     Dosage: 10-6.25 MG
     Route: 048
     Dates: start: 20170903
  4. BISOPROLOL HCTZ [Concomitant]
     Indication: HYPERTENSION
     Route: 048
     Dates: start: 1997
  5. BRILINTA [Suspect]
     Active Substance: TICAGRELOR
     Indication: STENT PLACEMENT
     Route: 048
  6. ATORVASTATIN [Concomitant]
     Active Substance: ATORVASTATIN
     Indication: BLOOD CHOLESTEROL INCREASED
     Route: 048
  7. BRILINTA [Suspect]
     Active Substance: TICAGRELOR
     Indication: STENT PLACEMENT
     Route: 048
     Dates: start: 20171023
  8. BISOPROLOL HCTZ [Concomitant]
     Indication: BLOOD PRESSURE ABNORMAL
     Route: 048
     Dates: start: 1997
  9. CRESTOR [Suspect]
     Active Substance: ROSUVASTATIN CALCIUM
     Indication: BLOOD CHOLESTEROL ABNORMAL
     Dosage: DAILY
     Route: 048
     Dates: start: 2003, end: 2006
  10. ATORVASTATIN [Concomitant]
     Active Substance: ATORVASTATIN
     Indication: BLOOD CHOLESTEROL INCREASED
     Route: 048
  11. BISOPROLOL HCTZ [Concomitant]
     Indication: BLOOD PRESSURE ABNORMAL
     Dosage: 5- 6.25 MG UNK
     Route: 048
  12. BISOPROLOL HCTZ [Concomitant]
     Indication: HYPERTENSION
     Dosage: 5- 6.25 MG UNK
     Route: 048
  13. ATORVASTATIN [Concomitant]
     Active Substance: ATORVASTATIN
     Indication: BLOOD CHOLESTEROL INCREASED
     Route: 048
  14. ASPIRIN. [Concomitant]
     Active Substance: ASPIRIN
     Indication: MYOCARDIAL INFARCTION
     Route: 048
     Dates: start: 2002

REACTIONS (17)
  - Arthropathy [Recovered/Resolved]
  - Muscle tone disorder [Not Recovered/Not Resolved]
  - Gait disturbance [Recovered/Resolved]
  - Fatigue [Not Recovered/Not Resolved]
  - Therapy cessation [Unknown]
  - Coronary artery occlusion [Unknown]
  - Abdominal pain [Recovered/Resolved]
  - Diarrhoea [Unknown]
  - Vision blurred [Recovering/Resolving]
  - Mobility decreased [Recovered/Resolved]
  - Pain in extremity [Recovered/Resolved]
  - Headache [Not Recovered/Not Resolved]
  - Dyspnoea [Recovered/Resolved]
  - Abdominal discomfort [Recovered/Resolved]
  - Blood cholesterol abnormal [Unknown]
  - Pain [Recovered/Resolved]
  - Arthralgia [Recovered/Resolved]

NARRATIVE: CASE EVENT DATE: 2006
